FAERS Safety Report 8182723-4 (Version None)
Quarter: 2012Q1

REPORT INFORMATION
  Report Type: 
  Country: None (occurrence: None)
  Receive Date: 20120305
  Receipt Date: 20120206
  Transmission Date: 20120608
  Serious: No
  Sender: FDA-Public Use
  Company Number: US-PFIZER INC-2012054115

PATIENT
  Sex: Female
  Weight: 63.492 kg

DRUGS (4)
  1. DEMEROL [Suspect]
  2. ACETYLSALICYLIC ACID SRT [Suspect]
  3. CODEINE SULFATE [Suspect]
  4. POTASSIUM PENICILLIN G [Suspect]

REACTIONS (1)
  - DRUG HYPERSENSITIVITY [None]
